FAERS Safety Report 8717202 (Version 5)
Quarter: 2013Q2

REPORT INFORMATION
  Report Type: Report from Study
  Country: CO (occurrence: CO)
  Receive Date: 20120810
  Receipt Date: 20130628
  Transmission Date: 20140414
  Serious: Yes (Other)
  Sender: FDA-Public Use
  Company Number: PHHY2012CO068849

PATIENT
  Age: 65 Year
  Sex: Female

DRUGS (5)
  1. ACLASTA [Suspect]
     Indication: OSTEOPOROSIS
     Dosage: 5 MG, YEARLY
     Route: 042
     Dates: start: 20120727
  2. CAPRIMIDA  D [Concomitant]
  3. GLUCOSAMINE [Concomitant]
  4. ESZOPICLONE [Concomitant]
  5. LOVASTATIN [Concomitant]

REACTIONS (7)
  - Osteitis [Recovering/Resolving]
  - Pain in jaw [Recovering/Resolving]
  - Face oedema [Recovering/Resolving]
  - Periodontal inflammation [Recovering/Resolving]
  - Abscess jaw [Recovering/Resolving]
  - Periodontal disease [Recovering/Resolving]
  - Influenza [Recovering/Resolving]
